FAERS Safety Report 5156468-9 (Version None)
Quarter: 2006Q4

REPORT INFORMATION
  Report Type: 
  Country: None (occurrence: None)
  Receive Date: 20061113
  Receipt Date: 20061101
  Transmission Date: 20070319
  Serious: Yes (Hospitalization)
  Sender: FDA-Public Use
  Company Number: E2020-00626-CLI-US

PATIENT
  Age: 80 Year
  Sex: Female
  Weight: 53 kg

DRUGS (12)
  1. DONEPEZIL HCL [Suspect]
     Indication: DEMENTIA ALZHEIMER'S TYPE
     Dosage: 10 MG, 1 IN 1 D, ORAL
     Route: 048
     Dates: start: 20050908
  2. RASAGALINE [Suspect]
     Indication: DEMENTIA ALZHEIMER'S TYPE
     Dosage: 2 MG, 1 IN 1 D, ORAL
     Route: 048
     Dates: start: 20051205
  3. COUMADIN [Suspect]
     Dosage: 4 MG, 1 IN 1 D, ORAL; SEE IMAGE
     Route: 048
     Dates: start: 20060928, end: 20061002
  4. COUMADIN [Suspect]
     Dosage: 4 MG, 1 IN 1 D, ORAL; SEE IMAGE
     Route: 048
     Dates: start: 20061004, end: 20061009
  5. COUMADIN [Suspect]
     Dosage: 4 MG, 1 IN 1 D, ORAL; SEE IMAGE
     Route: 048
     Dates: start: 20061009, end: 20061009
  6. COUMADIN [Suspect]
     Dosage: 4 MG, 1 IN 1 D, ORAL; SEE IMAGE
     Route: 048
     Dates: start: 20061010, end: 20061013
  7. COUMADIN [Suspect]
     Dosage: 4 MG, 1 IN 1 D, ORAL; SEE IMAGE
     Route: 048
     Dates: start: 20061015, end: 20061015
  8. COUMADIN [Suspect]
     Dosage: 4 MG, 1 IN 1 D, ORAL; SEE IMAGE
     Route: 048
     Dates: start: 20061016, end: 20061016
  9. COUMADIN [Suspect]
     Dosage: 4 MG, 1 IN 1 D, ORAL; SEE IMAGE
     Route: 048
     Dates: start: 20061017
  10. DESONIDE [Concomitant]
  11. ATENOLOL [Concomitant]
  12. VICODIN [Concomitant]

REACTIONS (7)
  - COAGULOPATHY [None]
  - DEEP VEIN THROMBOSIS [None]
  - GASTRIC HAEMORRHAGE [None]
  - HUMERUS FRACTURE [None]
  - HYPOTENSION [None]
  - INTERNATIONAL NORMALISED RATIO DECREASED [None]
  - LYMPHOMA [None]
